FAERS Safety Report 8089576-3 (Version None)
Quarter: 2012Q1

REPORT INFORMATION
  Report Type: 
  Country: None (occurrence: None)
  Receive Date: 20120128
  Receipt Date: 20110617
  Transmission Date: 20120608
  Serious: No
  Sender: FDA-Public Use
  Company Number: US-ABBOTT-11P-163-0733597-00

PATIENT
  Age: 58 Year
  Sex: Female

DRUGS (8)
  1. ALLOPURINOL [Concomitant]
     Indication: GOUT
  2. LANTUS [Concomitant]
     Indication: DIABETES MELLITUS
     Dosage: IN THE AM
  3. FUROSEMIDE [Concomitant]
     Indication: FLUID RETENTION
  4. HUMIRA [Suspect]
     Indication: RHEUMATOID ARTHRITIS
     Dates: start: 20110301
  5. LISINOPRIL [Concomitant]
     Indication: HYPERTENSION
     Dosage: 20/25MG
  6. LEFLUNOMIDE [Concomitant]
     Indication: RHEUMATOID ARTHRITIS
  7. ACTOPLUS MET [Concomitant]
     Indication: DIABETES MELLITUS
     Dosage: 15-850MG
  8. PREDNISONE TAB [Concomitant]
     Indication: PRODUCT USED FOR UNKNOWN INDICATION

REACTIONS (1)
  - ARTHRALGIA [None]
